FAERS Safety Report 19289771 (Version 1)
Quarter: 2021Q2

REPORT INFORMATION
  Report Type: Spontaneous
  Country: US (occurrence: US)
  Receive Date: 20210522
  Receipt Date: 20210522
  Transmission Date: 20210717
  Serious: Yes (Other)
  Sender: FDA-Public Use
  Company Number: US-APPCO PHARMA LLC-2111836

PATIENT
  Sex: Male

DRUGS (1)
  1. MODAFINIL. [Suspect]
     Active Substance: MODAFINIL
     Indication: SLEEP DISORDER
     Route: 048
     Dates: start: 2021, end: 2021

REACTIONS (4)
  - Trigeminal neuralgia [Recovered/Resolved]
  - Headache [Recovered/Resolved]
  - Product substitution issue [Unknown]
  - Polyneuropathy [Recovered/Resolved]

NARRATIVE: CASE EVENT DATE: 2021
